FAERS Safety Report 18747516 (Version 2)
Quarter: 2021Q3

REPORT INFORMATION
  Report Type: Report from Study
  Country: AR (occurrence: AR)
  Receive Date: 20210115
  Receipt Date: 20210715
  Transmission Date: 20211014
  Serious: Yes (Hospitalization)
  Sender: FDA-Public Use
  Company Number: PHHY2017AR138702

PATIENT
  Sex: Female

DRUGS (3)
  1. GILENYA [Suspect]
     Active Substance: FINGOLIMOD HYDROCHLORIDE
     Dosage: 0.5 MG, INDICATED TO TAKE 6, 7, OR ONE TABLET PER MONTH
     Route: 048
  2. GILENYA [Suspect]
     Active Substance: FINGOLIMOD HYDROCHLORIDE
     Indication: MULTIPLE SCLEROSIS
     Dosage: 0.5 MG, QD
     Route: 048
     Dates: start: 20140527
  3. GILENYA [Suspect]
     Active Substance: FINGOLIMOD HYDROCHLORIDE
     Dosage: 0.5 MG, QW5 (INDICATED NOT TO TAKE THE MEDICATION 2 DAYS PER WEEK)
     Route: 048

REACTIONS (12)
  - Prescribed underdose [Unknown]
  - Off label use [Unknown]
  - Hypoaesthesia [Recovered/Resolved]
  - Back pain [Unknown]
  - Cough [Unknown]
  - Decreased immune responsiveness [Unknown]
  - Pyrexia [Unknown]
  - Nasal congestion [Unknown]
  - Headache [Unknown]
  - Lymphocyte count decreased [Unknown]
  - Nervousness [Recovered/Resolved]
  - Suspected COVID-19 [Unknown]

NARRATIVE: CASE EVENT DATE: 2017
